FAERS Safety Report 10557829 (Version 1)
Quarter: 2014Q4

REPORT INFORMATION
  Report Type: Spontaneous
  Country: US (occurrence: None)
  Receive Date: 20141030
  Receipt Date: 20141030
  Transmission Date: 20150529
  Serious: Yes (Hospitalization)
  Sender: FDA-Public Use
  Company Number: None

PATIENT
  Age: 90 Year
  Sex: Male
  Weight: 97.9 kg

DRUGS (20)
  1. ASPIRIN 325 MG [Suspect]
     Active Substance: ASPIRIN
     Indication: CORONARY ARTERY DISEASE
     Dosage: CHRONIC
     Route: 048
  2. VITAMIN B12 [Concomitant]
     Active Substance: CYANOCOBALAMIN
  3. NOVOLIN [Concomitant]
     Active Substance: INSULIN HUMAN
  4. THERAGRAN [Concomitant]
     Active Substance: VITAMINS
  5. TRAMADOL [Concomitant]
     Active Substance: TRAMADOL
  6. CALCIUM [Concomitant]
     Active Substance: CALCIUM
  7. LEVOTHROID [Concomitant]
     Active Substance: LEVOTHYROXINE SODIUM
  8. LEVAQUIN [Concomitant]
     Active Substance: LEVOFLOXACIN
  9. ADVAIR DISKUS [Concomitant]
     Active Substance: FLUTICASONE PROPIONATE\SALMETEROL XINAFOATE
  10. LIDODERM [Concomitant]
     Active Substance: LIDOCAINE
  11. PRILOSEC [Concomitant]
     Active Substance: OMEPRAZOLE MAGNESIUM
  12. NORCO [Concomitant]
     Active Substance: ACETAMINOPHEN\HYDROCODONE BITARTRATE
  13. ACETAMINOPHEN. [Concomitant]
     Active Substance: ACETAMINOPHEN
  14. VITAMIN C [Concomitant]
     Active Substance: ASCORBIC ACID
  15. FERROUS SULFATE [Concomitant]
     Active Substance: FERROUS SULFATE\FERROUS SULFATE, DRIED
  16. SPRIVA WITH HANDIHALER [Concomitant]
  17. GABAPENTIN. [Concomitant]
     Active Substance: GABAPENTIN
  18. SKELAXIN [Concomitant]
     Active Substance: METAXALONE
  19. PLAVIX [Suspect]
     Active Substance: CLOPIDOGREL BISULFATE
     Indication: HEART VALVE REPLACEMENT
     Dosage: CHRONIC
     Route: 048
  20. PRAVACHOL [Concomitant]
     Active Substance: PRAVASTATIN SODIUM

REACTIONS (1)
  - Rectal haemorrhage [None]

NARRATIVE: CASE EVENT DATE: 20141029
